FAERS Safety Report 5494444-7 (Version None)
Quarter: 2007Q4

REPORT INFORMATION
  Report Type: 
  Country: None (occurrence: None)
  Receive Date: 20071024
  Receipt Date: 20071022
  Transmission Date: 20080405
  Serious: Yes (Hospitalization, Other)
  Sender: FDA-Public Use
  Company Number: US-BRISTOL-MYERS SQUIBB COMPANY-13891429

PATIENT
  Age: 65 Year
  Sex: Male

DRUGS (8)
  1. GLUCOPHAGE [Suspect]
  2. VIOXX [Suspect]
  3. PRINIVIL [Suspect]
  4. CODEINE [Suspect]
  5. PAXIL [Concomitant]
  6. ASPIRIN [Concomitant]
  7. ATENOLOL [Concomitant]
  8. WARFARIN SODIUM [Concomitant]

REACTIONS (19)
  - ABDOMINAL DISCOMFORT [None]
  - ARTHROPATHY [None]
  - CARDIAC FAILURE CONGESTIVE [None]
  - CARDIOVASCULAR DISORDER [None]
  - CEREBROVASCULAR ACCIDENT [None]
  - CHEST DISCOMFORT [None]
  - CORONARY ARTERY DISEASE [None]
  - COUGH [None]
  - DEPRESSION [None]
  - DIABETES MELLITUS [None]
  - DIARRHOEA [None]
  - DIZZINESS [None]
  - DRUG HYPERSENSITIVITY [None]
  - HYPERTENSION [None]
  - MYOCARDIAL INFARCTION [None]
  - PERICARDIAL EFFUSION [None]
  - PSORIATIC ARTHROPATHY [None]
  - RHINORRHOEA [None]
  - URTICARIA [None]
